FAERS Safety Report 24898850 (Version 1)
Quarter: 2025Q1

REPORT INFORMATION
  Report Type: Spontaneous
  Country: US (occurrence: None)
  Receive Date: 20250128
  Receipt Date: 20250128
  Transmission Date: 20250408
  Serious: Yes (Death, Hospitalization)
  Sender: FDA-CTU
  Company Number: None

PATIENT
  Age: 72 Year
  Sex: Female

DRUGS (14)
  1. AMBRISENTAN [Suspect]
     Active Substance: AMBRISENTAN
     Indication: Pulmonary hypertension
     Dosage: FREQUENCY : DAILY;?
     Route: 048
     Dates: start: 20240223, end: 20241203
  2. sildenfail [Concomitant]
  3. FUROSEMIDE [Concomitant]
     Active Substance: FUROSEMIDE
  4. SCOPOLAMINE TRANSDERMAL SYSTEM [Concomitant]
     Active Substance: SCOPOLAMINE
  5. NORCO [Concomitant]
     Active Substance: ACETAMINOPHEN\HYDROCODONE BITARTRATE
  6. FIORICET [Concomitant]
     Active Substance: ACETAMINOPHEN\BUTALBITAL\CAFFEINE
  7. FLUCONAZOLE [Concomitant]
     Active Substance: FLUCONAZOLE
  8. PROPRANOLOL [Concomitant]
     Active Substance: PROPRANOLOL HYDROCHLORIDE
  9. CETIRIZINE [Concomitant]
     Active Substance: CETIRIZINE HYDROCHLORIDE
  10. PROMETHAZINE [Concomitant]
     Active Substance: PROMETHAZINE HYDROCHLORIDE
  11. ACYCLOVIR [Concomitant]
     Active Substance: ACYCLOVIR
  12. ONDANSETRON [Concomitant]
     Active Substance: ONDANSETRON
  13. VITAMIN D2 [Concomitant]
     Active Substance: ERGOCALCIFEROL
  14. NARATRIPTAN [Concomitant]
     Active Substance: NARATRIPTAN HYDROCHLORIDE

REACTIONS (6)
  - Respiratory failure [None]
  - Pneumonia [None]
  - Anaemia [None]
  - Thrombocytopenia [None]
  - Confusional state [None]
  - Hospice care [None]

NARRATIVE: CASE EVENT DATE: 20241118
